FAERS Safety Report 4698964-4 (Version None)
Quarter: 2005Q2

REPORT INFORMATION
  Report Type: 
  Country: None (occurrence: None)
  Receive Date: 20050622
  Receipt Date: 20050622
  Transmission Date: 20051028
  Serious: Yes (Life-Threatening, Other)
  Sender: FDA-Public Use
  Company Number: None

PATIENT
  Sex: Female
  Weight: 68.0396 kg

DRUGS (1)
  1. AVONEX [Suspect]
     Indication: MULTIPLE SCLEROSIS
     Dosage: 30 MCG Q WEEK INTRAMUSCU
     Route: 030
     Dates: start: 20050406, end: 20050517

REACTIONS (3)
  - BREAST CANCER FEMALE [None]
  - OOPHORECTOMY [None]
  - OVARIAN DISORDER [None]
